FAERS Safety Report 4533204-8 (Version None)
Quarter: 2005Q1

REPORT INFORMATION
  Report Type: 
  Country: None (occurrence: None)
  Receive Date: 20041206
  Receipt Date: 20041013
  Transmission Date: 20050727
  Serious: No
  Sender: FDA-Public Use
  Company Number: USA041080980

PATIENT
  Age: 44 Year
  Sex: Female

DRUGS (2)
  1. CYMBALTA [Suspect]
     Indication: ANXIETY
     Dosage: 60 MG DAY
     Dates: start: 20040825
  2. CONCERTA [Concomitant]

REACTIONS (6)
  - HEADACHE [None]
  - IRRITABILITY [None]
  - LETHARGY [None]
  - NIGHT SWEATS [None]
  - NIGHTMARE [None]
  - SEDATION [None]
